FAERS Safety Report 20767701 (Version 2)
Quarter: 2022Q2

REPORT INFORMATION
  Report Type: Report from Study
  Country: MX (occurrence: MX)
  Receive Date: 20220429
  Receipt Date: 20220513
  Transmission Date: 20220721
  Serious: Yes (Death, Hospitalization, Other)
  Sender: FDA-Public Use
  Company Number: MX-BRISTOL-MYERS SQUIBB COMPANY-2022-024205

PATIENT
  Age: 44 Year
  Sex: Male
  Weight: 85 kg

DRUGS (1)
  1. NIVOLUMAB [Suspect]
     Active Substance: NIVOLUMAB
     Indication: Metastatic malignant melanoma
     Dosage: EVERY 28 DAYS
     Route: 042
     Dates: start: 20220217, end: 20220420

REACTIONS (1)
  - Illness [Fatal]

NARRATIVE: CASE EVENT DATE: 20220411
